FAERS Safety Report 23316920 (Version 22)
Quarter: 2025Q2

REPORT INFORMATION
  Report Type: Spontaneous
  Country: US (occurrence: US)
  Receive Date: 20231219
  Receipt Date: 20250613
  Transmission Date: 20250717
  Serious: Yes (Hospitalization)
  Sender: ROCHE
  Company Number: US-ROCHE-3342267

PATIENT
  Age: 10 Year
  Sex: Male
  Weight: 26.2 kg

DRUGS (6)
  1. HEMLIBRA [Suspect]
     Active Substance: EMICIZUMAB-KXWH
     Indication: Von Willebrand^s disease
     Dosage: FORM STRENGTH: 105 MG/0.7ML
     Route: 058
     Dates: start: 20230320
  2. HEMLIBRA [Suspect]
     Active Substance: EMICIZUMAB-KXWH
     Dosage: FORM STRENGTH: 60 MG/0.4ML
     Route: 058
     Dates: start: 202304
  3. HEMLIBRA [Suspect]
     Active Substance: EMICIZUMAB-KXWH
     Dosage: STRENGTH 60 MG/0.4 ML
     Route: 058
     Dates: start: 202304
  4. HEMLIBRA [Suspect]
     Active Substance: EMICIZUMAB-KXWH
     Dosage: GOOD COMPLIANCE
     Route: 058
     Dates: start: 20230411
  5. AMICAR [Concomitant]
     Active Substance: AMINOCAPROIC ACID
  6. HUMATE-P [Concomitant]
     Active Substance: HUMAN COAGULATION FACTOR VIII/VON WILLEBRAND FACTOR COMPLEX

REACTIONS (10)
  - Gingival bleeding [Recovered/Resolved]
  - Off label use [Unknown]
  - Mucosal haemorrhage [Not Recovered/Not Resolved]
  - Pyrexia [Unknown]
  - Haematological infection [Unknown]
  - Haemorrhage [Recovered/Resolved]
  - Influenza [Unknown]
  - Peripheral swelling [Unknown]
  - Epistaxis [Unknown]
  - Haemorrhage [Recovered/Resolved]

NARRATIVE: CASE EVENT DATE: 20230407
